FAERS Safety Report 5087236-4 (Version None)
Quarter: 2006Q3

REPORT INFORMATION
  Report Type: 
  Country: None (occurrence: None)
  Receive Date: 20060821
  Receipt Date: 20060807
  Transmission Date: 20061208
  Serious: Yes (Other)
  Sender: FDA-Public Use
  Company Number: 6024941

PATIENT
  Age: 47 Year
  Sex: Male

DRUGS (10)
  1. BISOPROLOL FUMARATE [Suspect]
     Indication: CARDIAC FAILURE
     Dates: start: 20010101
  2. CARDENSIEL (BISOPROLOL FUMARATE) [Suspect]
     Indication: CARDIAC FAILURE
     Dates: start: 20010101
  3. ACEBUTOLOL [Suspect]
     Indication: CARDIAC FAILURE
     Dates: start: 19990101
  4. SECTRAL [Suspect]
     Indication: CARDIAC FAILURE
     Dates: start: 19990101
  5. CARVEDILOL [Suspect]
     Indication: CARDIAC FAILURE
     Dosage: 6.25 MG (3.125 MG, 2 IN 1 D)
     Dates: start: 20021101
  6. LASIX [Concomitant]
  7. COZAAR [Concomitant]
  8. ZOCOR [Concomitant]
  9. PLAVIX [Concomitant]
  10. OMEPRAZOLE [Concomitant]

REACTIONS (1)
  - URTICARIA CHOLINERGIC [None]
